FAERS Safety Report 13773004 (Version 2)
Quarter: 2017Q3

REPORT INFORMATION
  Report Type: Spontaneous
  Country: US (occurrence: US)
  Receive Date: 20170720
  Receipt Date: 20170811
  Transmission Date: 20171127
  Serious: Yes (Other)
  Sender: FDA-Public Use
  Company Number: US-PFIZER INC-2017313201

PATIENT
  Age: 20 Year
  Sex: Female

DRUGS (5)
  1. DEXTRAN [Suspect]
     Active Substance: DEXTRAN
     Indication: STEM CELL TRANSPLANT
     Dosage: UNK
     Route: 042
  2. ALBUMIN [Suspect]
     Active Substance: ALBUMIN HUMAN
     Indication: STEM CELL TRANSPLANT
     Dosage: UNK
  3. BENADRYL [Concomitant]
     Active Substance: DIPHENHYDRAMINE HYDROCHLORIDE
     Indication: PREMEDICATION
     Dosage: 50 MG, UNK
     Route: 003
  4. HYDROCORTISONE. [Concomitant]
     Active Substance: HYDROCORTISONE
     Indication: PREMEDICATION
     Dosage: 100 MG, UNK
  5. MANNITOL. [Concomitant]
     Active Substance: MANNITOL
     Dosage: UNK

REACTIONS (5)
  - Chest pain [Recovered/Resolved]
  - Anxiety [Recovered/Resolved]
  - Dyspnoea [Recovering/Resolving]
  - Hypertension [Recovering/Resolving]
  - Hypoxia [Recovering/Resolving]
